FAERS Safety Report 4893337-3 (Version None)
Quarter: 2006Q1

REPORT INFORMATION
  Report Type: 
  Country: None (occurrence: None)
  Receive Date: 20060127
  Receipt Date: 20060116
  Transmission Date: 20060701
  Serious: Yes (Other)
  Sender: FDA-Public Use
  Company Number: US-ABBOTT-06P-163-0322593-00

PATIENT
  Age: 46 Year
  Sex: Male

DRUGS (4)
  1. VALPROIC ACID [Suspect]
     Indication: BIPOLAR I DISORDER
     Dosage: 3500 MG/DAY
  2. GABAPENTIN [Concomitant]
     Indication: ALCOHOL WITHDRAWAL SYNDROME
     Dosage: 3600 MG IN DIVIDED DOSES
  3. GABAPENTIN [Concomitant]
  4. GABAPENTIN [Concomitant]

REACTIONS (2)
  - ALCOHOL WITHDRAWAL SYNDROME [None]
  - HEPATIC ENZYME INCREASED [None]
